FAERS Safety Report 14716197 (Version 2)
Quarter: 2018Q2

REPORT INFORMATION
  Report Type: Spontaneous
  Country: CN (occurrence: CN)
  Receive Date: 20180404
  Receipt Date: 20180604
  Transmission Date: 20180711
  Serious: Yes (Hospitalization, Other)
  Sender: FDA-Public Use
  Company Number: CN-VALIDUS PHARMACEUTICALS LLC-CN-2018VAL000594

PATIENT
  Age: 53 Year
  Sex: Male
  Weight: 70 kg

DRUGS (6)
  1. CEFOPERAZONE SODIUM [Suspect]
     Active Substance: CEFOPERAZONE SODIUM
     Indication: PRODUCT USED FOR UNKNOWN INDICATION
     Dosage: 2 G, Q12H
     Route: 041
     Dates: start: 20160429, end: 20160505
  2. FUROSEMIDE. [Suspect]
     Active Substance: FUROSEMIDE
     Indication: PRODUCT USED FOR UNKNOWN INDICATION
     Dosage: 20 MG, UNK
     Route: 042
     Dates: start: 20160323, end: 20160505
  3. METRONIDAZOLE. [Suspect]
     Active Substance: METRONIDAZOLE
     Indication: PRODUCT USED FOR UNKNOWN INDICATION
     Dosage: 0.5 G, QD
     Route: 041
     Dates: start: 20160429, end: 20160429
  4. CILASTATIN SODIUM W/IMIPENEM [Suspect]
     Active Substance: CILASTATIN SODIUM\IMIPENEM
     Indication: PANCREATITIS ACUTE
     Dosage: 1 G, Q6H
     Route: 041
     Dates: start: 20160323, end: 20160429
  5. FUROSEMIDE. [Suspect]
     Active Substance: FUROSEMIDE
     Dosage: UNK, QD
     Route: 042
     Dates: start: 20160328, end: 2016
  6. VANCOMYCIN [Suspect]
     Active Substance: VANCOMYCIN
     Indication: PANCREATITIS ACUTE
     Dosage: 0.5 MG, QH
     Route: 042
     Dates: start: 20160325, end: 20160424

REACTIONS (12)
  - Eructation [Recovered/Resolved]
  - Blood uric acid increased [Recovered/Resolved]
  - Rash maculo-papular [Recovered/Resolved]
  - Tubulointerstitial nephritis [Recovered/Resolved]
  - Eosinophil count increased [Recovered/Resolved]
  - Drug hypersensitivity [Unknown]
  - Blood urea increased [Recovered/Resolved]
  - Toxicity to various agents [Recovered/Resolved]
  - Pyrexia [Recovered/Resolved]
  - Urine output increased [Recovered/Resolved]
  - Blood creatinine increased [Recovered/Resolved]
  - Rash [Recovering/Resolving]

NARRATIVE: CASE EVENT DATE: 20160328
